FAERS Safety Report 9856708 (Version 1)
Quarter: 2014Q1

REPORT INFORMATION
  Report Type: Spontaneous
  Country: ES (occurrence: None)
  Receive Date: 20140127
  Receipt Date: 20140127
  Transmission Date: 20141002
  Serious: Yes (Hospitalization)
  Sender: FDA-Public Use
  Company Number: E2B_7260692

PATIENT
  Age: 81 Year
  Sex: Female

DRUGS (7)
  1. EUTIROX (LEVOTHYROXINE SODIUM) [Suspect]
     Indication: HYPOTHYROIDISM
     Route: 048
     Dates: start: 201308
  2. LEXATIN [Suspect]
     Indication: ANXIETY
     Route: 048
     Dates: start: 201305, end: 201312
  3. LORAZEPAM (LORAZEPAM) (LORAZEPAM) [Suspect]
     Indication: INSOMNIA
     Route: 048
     Dates: start: 201305, end: 201312
  4. ESCITALOPRAM (ESCITALOPRAM) [Suspect]
     Indication: DEPRESSION
     Route: 048
     Dates: start: 201305, end: 201312
  5. CLOPIDOGREL (CLOPIDOGREL) (CLOPIDOGREL) [Concomitant]
  6. ATORVASTATIN (ATORVASTATIN) (ATORVASTATIN) [Concomitant]
  7. ZAMENE (DEFLAZACORT) (DEFLAZACORT) [Concomitant]

REACTIONS (2)
  - Rash maculo-papular [None]
  - Pruritus [None]
